FAERS Safety Report 4758175-0 (Version None)
Quarter: 2005Q3

REPORT INFORMATION
  Report Type: 
  Country: None (occurrence: None)
  Receive Date: 20050831
  Receipt Date: 20050815
  Transmission Date: 20060218
  Serious: Yes (Death, Hospitalization)
  Sender: FDA-Public Use
  Company Number: US-MERCK-0508USA02975

PATIENT
  Age: 82 Year
  Sex: Female
  Weight: 41 kg

DRUGS (28)
  1. VIOXX [Suspect]
     Indication: ARTHRITIS
     Route: 048
     Dates: start: 20011203, end: 20030802
  2. VIOXX [Suspect]
     Indication: OSTEOPOROSIS
     Route: 048
     Dates: start: 20011203, end: 20030802
  3. ADVAIR DISKUS 100/50 [Concomitant]
     Route: 065
  4. AMBIEN [Concomitant]
     Route: 065
  5. [THERAPY UNSPECIFIED] [Concomitant]
     Route: 065
  6. NORVASC [Concomitant]
     Route: 065
  7. BACTROBAN [Concomitant]
     Route: 065
  8. PRILOSEC [Concomitant]
     Route: 065
  9. DIFLUCAN [Concomitant]
     Route: 065
  10. CARBIDOPA AND LEVODOPA [Concomitant]
     Route: 065
  11. HYDRODIURIL [Concomitant]
     Route: 048
  12. NEURONTIN [Concomitant]
     Route: 065
  13. PREDNISONE [Concomitant]
     Route: 065
  14. MUPIROCIN [Concomitant]
     Route: 065
  15. CEPHALEXIN [Concomitant]
     Route: 065
  16. TYLENOL W/ CODEINE NO. 3 [Concomitant]
     Route: 065
  17. TYLENOL WITH CODEINE #2 [Concomitant]
     Route: 065
  18. DUONEB [Concomitant]
     Route: 065
  19. NYSTATIN [Concomitant]
     Route: 065
  20. SANTYL [Concomitant]
     Route: 065
  21. MECLIZINE HYDROCHLORIDE [Concomitant]
     Route: 065
  22. ALBUTEROL [Concomitant]
     Route: 065
  23. DOCUSATE SODIUM [Concomitant]
     Route: 065
  24. ATROPINE SULFATE AND DIPHENOXYLATE HYDROCHLORIDE [Concomitant]
     Route: 065
  25. TRIAMCINOLONE [Concomitant]
     Route: 065
  26. MIACALCIN [Concomitant]
     Route: 065
  27. SYNTHROID [Concomitant]
     Route: 065
  28. BENZONATATE [Concomitant]
     Route: 065

REACTIONS (3)
  - ADVERSE EVENT [None]
  - CEREBROVASCULAR ACCIDENT [None]
  - PAIN [None]
